FAERS Safety Report 8981517 (Version 1)
Quarter: 2012Q4

REPORT INFORMATION
  Report Type: 
  Country: BE (occurrence: BE)
  Receive Date: 20121221
  Receipt Date: 20121221
  Transmission Date: 20130627
  Serious: Yes (Hospitalization, Other)
  Sender: FDA-Public Use
  Company Number: BE-PAR PHARMACEUTICAL, INC-2012SCPR004790

PATIENT

DRUGS (8)
  1. VENLAFAXINE HYDROCHLORIDE [Suspect]
     Indication: DEPRESSION
     Dosage: 150 mg, Unknown
     Route: 065
  2. MIRTAZAPINE [Interacting]
     Indication: DEPRESSION
     Dosage: 30 mg, Unknown
     Route: 065
  3. MIRTAZAPINE [Interacting]
     Dosage: 30 mg, Unknown
     Route: 065
  4. BISOPROLOL [Concomitant]
     Indication: PRODUCT USED FOR UNKNOWN INDICATION
     Dosage: 2.5 mg, Unknown
     Route: 065
  5. LEVOTHYROXIN [Concomitant]
     Indication: PRODUCT USED FOR UNKNOWN INDICATION
     Dosage: 125 mcg, Unknown
     Route: 065
  6. SODIUM PICOSULFATE [Concomitant]
     Indication: PRODUCT USED FOR UNKNOWN INDICATION
     Dosage: UNK, Unknown
     Route: 065
  7. PANTOPRAZOLE [Concomitant]
     Indication: PRODUCT USED FOR UNKNOWN INDICATION
     Dosage: 20 mg, Unknown
     Route: 065
  8. CALCIUM WITH VITAMIN D3 [Concomitant]
     Indication: PRODUCT USED FOR UNKNOWN INDICATION
     Dosage: UNK, Unknown
     Route: 065

REACTIONS (4)
  - Drug interaction [Unknown]
  - Urinary tract infection [Unknown]
  - Drug prescribing error [Recovered/Resolved]
  - Serotonin syndrome [Recovered/Resolved]
